FAERS Safety Report 22598492 (Version 2)
Quarter: 2023Q2

REPORT INFORMATION
  Report Type: Report from Study
  Country: US (occurrence: US)
  Receive Date: 20230614
  Receipt Date: 20230623
  Transmission Date: 20230721
  Serious: Yes (Hospitalization, Other)
  Sender: FDA-Public Use
  Company Number: US-002147023-NVSC2023US124465

PATIENT
  Age: 2 Year
  Sex: Female
  Weight: 14.1 kg

DRUGS (3)
  1. ZOLGENSMA [Suspect]
     Active Substance: ONASEMNOGENE ABEPARVOVEC-XIOI
     Indication: Spinal muscular atrophy
     Dosage: 1.1 X10E14 VG/KG, ONCE/SINGLE
     Route: 042
     Dates: start: 20230519, end: 20230519
  2. PREDNISOLONE [Concomitant]
     Active Substance: PREDNISOLONE
     Indication: Spinal muscular atrophy
     Dosage: 8.8 ML
     Route: 048
     Dates: start: 20230518, end: 20230608
  3. PREDNISOLONE [Concomitant]
     Active Substance: PREDNISOLONE
     Dosage: 0.5 ML
     Route: 065
     Dates: start: 20230608

REACTIONS (5)
  - Thrombotic microangiopathy [Recovered/Resolved]
  - Haemolysis [Recovered/Resolved]
  - Renal impairment [Recovered/Resolved]
  - Contusion [Recovered/Resolved]
  - Urinary tract infection [Unknown]

NARRATIVE: CASE EVENT DATE: 20230526
